FAERS Safety Report 6535101-5 (Version None)
Quarter: 2010Q1

REPORT INFORMATION
  Report Type: 
  Country: None (occurrence: None)
  Receive Date: 20100113
  Receipt Date: 20100104
  Transmission Date: 20100710
  Serious: Yes (Hospitalization)
  Sender: FDA-Public Use
  Company Number: US-BIOGENIDEC-2009BI041407

PATIENT
  Age: 61 Year
  Sex: Male

DRUGS (2)
  1. AVONEX [Suspect]
     Indication: MULTIPLE SCLEROSIS
     Route: 030
     Dates: start: 20061018
  2. BACLOFEN [Concomitant]
     Indication: MUSCLE SPASTICITY

REACTIONS (2)
  - MEDICAL DEVICE COMPLICATION [None]
  - MUSCLE SPASTICITY [None]
